FAERS Safety Report 7482646-X (Version None)
Quarter: 2011Q2

REPORT INFORMATION
  Report Type: 
  Country: None (occurrence: None)
  Receive Date: 20110516
  Receipt Date: 20110407
  Transmission Date: 20111010
  Serious: Yes (Other)
  Sender: FDA-Public Use
  Company Number: US-UCBSA-031030

PATIENT
  Age: 9 Year
  Sex: Male

DRUGS (1)
  1. XYZAL [Suspect]
     Dosage: 2.5 MG/5 ML
     Route: 048
     Dates: start: 20101001

REACTIONS (4)
  - PNEUMONIA [None]
  - ASTHMA [None]
  - NASOPHARYNGITIS [None]
  - BLOOD IMMUNOGLOBULIN G DECREASED [None]
